FAERS Safety Report 10904542 (Version 1)
Quarter: 2015Q1

REPORT INFORMATION
  Report Type: Spontaneous
  Country: US (occurrence: None)
  Receive Date: 20150107
  Receipt Date: 20150107
  Transmission Date: 20150721
  Serious: No
  Sender: FDA-Public Use
  Company Number: 2014TUS013273

PATIENT
  Age: 38 Year
  Sex: Female
  Weight: 78 kg

DRUGS (1)
  1. CONTRAVE [Suspect]
     Active Substance: BUPROPION HYDROCHLORIDE\NALTREXONE HYDROCHLORIDE
     Indication: OVERWEIGHT
     Dosage: 1 TABLET, QD IN AM, ORAL
     Route: 048
     Dates: start: 20141107, end: 20141113

REACTIONS (5)
  - Flushing [None]
  - Condition aggravated [None]
  - Motion sickness [None]
  - Inappropriate schedule of drug administration [None]
  - Headache [None]

NARRATIVE: CASE EVENT DATE: 20141119
